FAERS Safety Report 11237348 (Version 1)
Quarter: 2015Q3

REPORT INFORMATION
  Report Type: Spontaneous
  Country: US (occurrence: US)
  Receive Date: 20150703
  Receipt Date: 20150703
  Transmission Date: 20151125
  Serious: Yes (Hospitalization, Other)
  Sender: FDA-Public Use
  Company Number: US-GLENMARK PHARMACEUTICALS INC, USA.-2015GMK018003

PATIENT
  Age: 52 Year
  Sex: Male

DRUGS (5)
  1. VERAPAMIL [Suspect]
     Active Substance: VERAPAMIL HYDROCHLORIDE
     Indication: CEREBRAL VASOCONSTRICTION
     Dosage: 10 MG, UNK
     Route: 013
  2. ASPIRIN                            /00002701/ [Concomitant]
     Active Substance: ASPIRIN
     Indication: CEREBRAL VASOCONSTRICTION
     Dosage: 1 DF, QD
  3. VERAPAMIL [Suspect]
     Active Substance: VERAPAMIL HYDROCHLORIDE
     Dosage: 10 MG, UNK
     Route: 013
  4. HEPARIN [Concomitant]
     Active Substance: HEPARIN SODIUM
     Indication: DEEP VEIN THROMBOSIS
     Dosage: UNK
     Route: 042
  5. NIMODIPINE. [Concomitant]
     Active Substance: NIMODIPINE
     Indication: CEREBRAL VASOCONSTRICTION
     Dosage: 60 MG, EVERY 4 HOURS

REACTIONS (5)
  - Monoplegia [Recovered/Resolved]
  - Cerebral infarction [Unknown]
  - Product use issue [Unknown]
  - Arterial disorder [Unknown]
  - Cerebral ventricle dilatation [Unknown]
